FAERS Safety Report 4318201-X (Version None)
Quarter: 2004Q1

REPORT INFORMATION
  Report Type: 
  Country: None (occurrence: None)
  Receive Date: 20040315
  Receipt Date: 20040224
  Transmission Date: 20041129
  Serious: Yes (Death, Other)
  Sender: FDA-Public Use
  Company Number: USA-2004-0013420

PATIENT
  Age: 41 Year
  Sex: Male

DRUGS (10)
  1. OXYCONTIN [Suspect]
  2. DURAGESIC [Concomitant]
  3. ATENOLOL [Concomitant]
  4. METHADONE HCL [Concomitant]
  5. ZANAFLEX [Concomitant]
  6. PRILOSEC [Concomitant]
  7. SERZONE [Concomitant]
  8. REMERON [Concomitant]
  9. CHLORAL HYDRATE (CHLORAL HYDRATE) [Concomitant]
  10. FLUOXETINE [Concomitant]

REACTIONS (3)
  - ARRHYTHMIA [None]
  - DRUG DEPENDENCE [None]
  - MYOCARDIAL ISCHAEMIA [None]
